FAERS Safety Report 10162507 (Version 1)
Quarter: 2014Q2

REPORT INFORMATION
  Report Type: Spontaneous
  Country: US (occurrence: US)
  Receive Date: 20140509
  Receipt Date: 20140509
  Transmission Date: 20141212
  Serious: No
  Sender: FDA-Public Use
  Company Number: US-PFIZER INC-2014126099

PATIENT
  Age: 65 Year
  Sex: Female
  Weight: 79.8 kg

DRUGS (10)
  1. ZIPRASIDONE HCL [Suspect]
     Indication: SCHIZOPHRENIA
     Dosage: 80 MG, 2X/DAY
     Route: 048
  2. ZIPRASIDONE HCL [Suspect]
     Indication: DEPRESSION
  3. TRADJENTA [Concomitant]
     Indication: DIABETES MELLITUS
     Dosage: 5 MG, DAILY
  4. GLIPIZIDE [Concomitant]
     Indication: DIABETES MELLITUS
     Dosage: (5MG IN THE MORNING AND 3.5MG AT NIGHT), 2X/DAY
  5. METFORMIN [Concomitant]
     Indication: DIABETES MELLITUS
     Dosage: 1000 MG, 2X/DAY
  6. SERTRALINE HYDROCHLORIDE [Concomitant]
     Dosage: 100 MG, DAILY
  7. VENLAFAXINE [Concomitant]
     Dosage: 150 MG, DAILY
  8. RISPERIDONE [Concomitant]
     Dosage: 1 MG, 5X/DAY
  9. LORAZEPAM [Concomitant]
     Indication: ANXIETY
     Dosage: 1 MG, 4X/DAY
  10. L-METHYLFOLATE [Concomitant]
     Indication: SCHIZOPHRENIA
     Dosage: UNK

REACTIONS (1)
  - Drug ineffective [Unknown]
